FAERS Safety Report 18022340 (Version 3)
Quarter: 2021Q3

REPORT INFORMATION
  Report Type: Other
  Country: US (occurrence: US)
  Receive Date: 20200715
  Receipt Date: 20210729
  Transmission Date: 20211014
  Serious: Yes (Hospitalization, Other)
  Sender: FDA-Public Use
  Company Number: US-ROCHE-2148166

PATIENT
  Age: 83 Year
  Sex: Male
  Weight: 84.9 kg

DRUGS (22)
  1. COREG [Concomitant]
     Active Substance: CARVEDILOL
     Dosage: HEART DOCTOR IS EXPERIMENTING WITH DOSING. ;ONGOING: YES
     Route: 048
     Dates: start: 201805
  2. FLOMAX [Concomitant]
     Active Substance: TAMSULOSIN HYDROCHLORIDE
     Dosage: ONGOING: YES
     Route: 048
  3. ELIQUIS [Concomitant]
     Active Substance: APIXABAN
     Route: 048
  4. COREG [Concomitant]
     Active Substance: CARVEDILOL
     Route: 048
  5. WARFARIN [Concomitant]
     Active Substance: WARFARIN
     Route: 048
  6. ENTRESTO [Concomitant]
     Active Substance: SACUBITRIL\VALSARTAN
     Dosage: 24/26 MG 1 PILL TWICE DAILY BEEN ON FOR 1 MONTH
     Route: 048
  7. SPIRONOLACTONE. [Concomitant]
     Active Substance: SPIRONOLACTONE
     Route: 048
  8. ESBRIET [Suspect]
     Active Substance: PIRFENIDONE
     Route: 048
  9. RAMIPRIL. [Concomitant]
     Active Substance: RAMIPRIL
     Dosage: ONGOING: YES
     Route: 048
     Dates: start: 201805
  10. WARFARIN [Concomitant]
     Active Substance: WARFARIN
     Indication: ANTICOAGULANT THERAPY
     Dosage: ONGOING: YES
     Route: 048
  11. ESBRIET [Suspect]
     Active Substance: PIRFENIDONE
     Indication: IDIOPATHIC PULMONARY FIBROSIS
     Dosage: ONGOING: YES
     Route: 048
     Dates: start: 20180611
  12. ESBRIET [Suspect]
     Active Substance: PIRFENIDONE
     Indication: SCLERODERMA
     Route: 048
     Dates: start: 201806
  13. TORSEMIDE. [Concomitant]
     Active Substance: TORSEMIDE
     Dosage: ONGOING: YES
     Route: 048
  14. TORSEMIDE. [Concomitant]
     Active Substance: TORSEMIDE
     Route: 048
  15. WARFARIN [Concomitant]
     Active Substance: WARFARIN
     Dosage: ONGOING: YES
     Route: 048
  16. WARFARIN [Concomitant]
     Active Substance: WARFARIN
     Route: 048
  17. ESBRIET [Suspect]
     Active Substance: PIRFENIDONE
     Indication: CARDIAC FAILURE CONGESTIVE
     Dosage: 7 DOSAGE FORM A DAY
     Route: 048
  18. COREG [Concomitant]
     Active Substance: CARVEDILOL
     Dosage: ONGOING: YES
     Route: 048
  19. ALLOPURINOL. [Concomitant]
     Active Substance: ALLOPURINOL
     Indication: GOUT
     Route: 048
  20. ESBRIET [Suspect]
     Active Substance: PIRFENIDONE
     Indication: CHRONIC LEFT VENTRICULAR FAILURE
     Dosage: 9 DOSAGE FORM A DAY
     Route: 048
  21. ESBRIET [Suspect]
     Active Substance: PIRFENIDONE
     Dosage: 3 PILLS 3 TIMES DAILY BEEN ON FOR 4 MONTHS
     Route: 048
     Dates: start: 2018
  22. FUROSEMID [Concomitant]
     Active Substance: FUROSEMIDE
     Dosage: BEEN ON FOR AWHILE;
     Route: 048

REACTIONS (12)
  - Nausea [Not Recovered/Not Resolved]
  - Decreased appetite [Not Recovered/Not Resolved]
  - Asthenia [Not Recovered/Not Resolved]
  - Ageusia [Not Recovered/Not Resolved]
  - Abdominal distension [Unknown]
  - Abdominal distension [Recovered/Resolved with Sequelae]
  - Weight decreased [Not Recovered/Not Resolved]
  - Abdominal discomfort [Recovered/Resolved with Sequelae]
  - Decreased appetite [Not Recovered/Not Resolved]
  - Anosmia [Not Recovered/Not Resolved]
  - Visual impairment [Not Recovered/Not Resolved]
  - Ageusia [Unknown]

NARRATIVE: CASE EVENT DATE: 2018
